FAERS Safety Report 15240004 (Version 3)
Quarter: 2019Q4

REPORT INFORMATION
  Report Type: Report from Study
  Country: US (occurrence: US)
  Receive Date: 20180803
  Receipt Date: 20191205
  Transmission Date: 20200122
  Serious: Yes (Hospitalization, Other)
  Sender: FDA-Public Use
  Company Number: US-ACTELION-A-NJ2018-167549

PATIENT
  Age: 53 Year
  Sex: Female
  Weight: 65.76 kg

DRUGS (8)
  1. VELETRI [Suspect]
     Active Substance: EPOPROSTENOL
     Indication: PULMONARY ARTERIAL HYPERTENSION
     Dosage: 15 NG/KG, PER MIN
     Route: 042
  2. VELETRI [Suspect]
     Active Substance: EPOPROSTENOL
     Dosage: UNK
     Route: 042
     Dates: start: 201710
  3. OPSUMIT [Suspect]
     Active Substance: MACITENTAN
     Dosage: 10 MG, QD
     Route: 048
  4. VELETRI [Suspect]
     Active Substance: EPOPROSTENOL
     Dosage: 8.2 NG/KG, PER MIN
     Route: 042
  5. UPTRAVI [Concomitant]
     Active Substance: SELEXIPAG
     Indication: PULMONARY ARTERIAL HYPERTENSION
     Dosage: 400 MCG, BID
     Route: 048
  6. SILDENAFIL. [Concomitant]
     Active Substance: SILDENAFIL
  7. OPSUMIT [Suspect]
     Active Substance: MACITENTAN
     Indication: PULMONARY ARTERIAL HYPERTENSION
     Dosage: 10 MG, UNK
     Route: 048
     Dates: start: 2016
  8. VELETRI [Suspect]
     Active Substance: EPOPROSTENOL
     Dosage: 7.4 NG/KG, PER MIN
     Route: 042

REACTIONS (26)
  - Catheterisation cardiac [Unknown]
  - Dizziness [Unknown]
  - Presyncope [Unknown]
  - Catheter management [Unknown]
  - Transfusion [Recovered/Resolved]
  - Pain [Unknown]
  - Depression [Unknown]
  - Drug ineffective [Not Recovered/Not Resolved]
  - Catheter site infection [Unknown]
  - Colonoscopy [Unknown]
  - Dehydration [Unknown]
  - Adverse event [Not Recovered/Not Resolved]
  - Nasopharyngitis [Unknown]
  - Back pain [Unknown]
  - Dyspepsia [Unknown]
  - Unevaluable event [Not Recovered/Not Resolved]
  - Pain in extremity [Unknown]
  - Pulmonary hypertension [Unknown]
  - Weight decreased [Unknown]
  - Anaemia [Recovered/Resolved]
  - Diarrhoea [Unknown]
  - Lung transplant [Not Recovered/Not Resolved]
  - Malaise [Unknown]
  - Headache [Not Recovered/Not Resolved]
  - Nausea [Unknown]
  - Dyspnoea [Unknown]

NARRATIVE: CASE EVENT DATE: 201710
